FAERS Safety Report 21157473 (Version 2)
Quarter: 2022Q3

REPORT INFORMATION
  Report Type: Spontaneous
  Country: US (occurrence: US)
  Receive Date: 20220801
  Receipt Date: 20220804
  Transmission Date: 20221026
  Serious: Yes (Other)
  Sender: FDA-Public Use
  Company Number: US-PFIZER INC-202201021206

PATIENT
  Age: 54 Year
  Sex: Female
  Weight: 83.91 kg

DRUGS (4)
  1. PAXLOVID [Suspect]
     Active Substance: NIRMATRELVIR\RITONAVIR
     Indication: COVID-19 treatment
     Dosage: [PF-07321332 300 MG]/[RITONAVIR 100 MG]; 2X/DAY; 3 PILLS IN THE MORNING AND 3 PILLS AT NIGHT
     Route: 048
     Dates: start: 20220727, end: 20220728
  2. AMLODIPINE BESYLATE [Suspect]
     Active Substance: AMLODIPINE BESYLATE
     Indication: Hypertension
     Dosage: 5MG DAILY ONCE A DAY BY MOUTH
     Route: 048
  3. KLOR-CON [Concomitant]
     Active Substance: POTASSIUM CHLORIDE
     Indication: Blood potassium decreased
     Dosage: 20MG DAILY ONCE A DAY
     Dates: start: 2015
  4. ASPIRIN [Concomitant]
     Active Substance: ASPIRIN
     Indication: Transient ischaemic attack
     Dosage: 81MG DAILY

REACTIONS (4)
  - Acoustic neuroma [Unknown]
  - Muscle twitching [Unknown]
  - Blood pressure decreased [Unknown]
  - Cough [Unknown]
